FAERS Safety Report 16530184 (Version 2)
Quarter: 2019Q3

REPORT INFORMATION
  Report Type: Spontaneous
  Country: US (occurrence: US)
  Receive Date: 20190704
  Receipt Date: 20190723
  Transmission Date: 20191004
  Serious: Yes (Other)
  Sender: FDA-Public Use
  Company Number: US-EYEPOINT PHARMACEUTICALS, INC.-US-EYP-19-00067

PATIENT

DRUGS (2)
  1. DEXYCU [Suspect]
     Active Substance: DEXAMETHASONE
     Indication: POST PROCEDURAL INFLAMMATION
     Route: 031
  2. MIOCHOL [Concomitant]
     Active Substance: ACETYLCHOLINE CHLORIDE
     Indication: PRODUCT USED FOR UNKNOWN INDICATION
     Route: 065

REACTIONS (3)
  - Extraocular muscle disorder [Unknown]
  - Pupillary disorder [Unknown]
  - Iris disorder [Unknown]
